FAERS Safety Report 24392530 (Version 2)
Quarter: 2024Q4

REPORT INFORMATION
  Report Type: Spontaneous
  Country: CN (occurrence: CN)
  Receive Date: 20241003
  Receipt Date: 20241015
  Transmission Date: 20250114
  Serious: Yes (Hospitalization, Other)
  Sender: NOVARTIS
  Company Number: CN-002147023-NVSC2024CN194633

PATIENT
  Age: 79 Year
  Sex: Male
  Weight: 60 kg

DRUGS (1)
  1. SACUBITRIL\VALSARTAN [Suspect]
     Active Substance: SACUBITRIL\VALSARTAN
     Indication: Cardiac failure acute
     Dosage: 25 MG, BID
     Route: 048
     Dates: start: 20240923, end: 20240924

REACTIONS (7)
  - Hypotension [Recovering/Resolving]
  - Arrhythmia [Unknown]
  - Atrial fibrillation [Unknown]
  - Heart rate increased [Unknown]
  - N-terminal prohormone brain natriuretic peptide increased [Unknown]
  - Extrasystoles [Unknown]
  - Electrocardiogram ST-T change [Unknown]

NARRATIVE: CASE EVENT DATE: 20240924
